FAERS Safety Report 8491427-X (Version None)
Quarter: 2012Q3

REPORT INFORMATION
  Report Type: 
  Country: None (occurrence: None)
  Receive Date: 20120706
  Receipt Date: 20120627
  Transmission Date: 20120928
  Serious: Yes (Life-Threatening, Other)
  Sender: FDA-Public Use
  Company Number: IT-JNJFOC-20120601701

PATIENT
  Age: 28 Year
  Sex: Male

DRUGS (3)
  1. REMICADE [Suspect]
     Indication: ANKYLOSING SPONDYLITIS
     Route: 042
  2. REMICADE [Suspect]
     Route: 042
     Dates: start: 20090922, end: 20100701
  3. SULFASALAZINE [Concomitant]
     Route: 065
     Dates: start: 20090101, end: 20100701

REACTIONS (3)
  - INFUSION RELATED REACTION [None]
  - DRUG HYPERSENSITIVITY [None]
  - ADVERSE EVENT [None]
